FAERS Safety Report 19656744 (Version 1)
Quarter: 2021Q3

REPORT INFORMATION
  Report Type: Spontaneous
  Country: NL (occurrence: NL)
  Receive Date: 20210804
  Receipt Date: 20210804
  Transmission Date: 20211014
  Serious: Yes (Hospitalization)
  Sender: FDA-Public Use
  Company Number: NL-TEVA-2021-NL-1938909

PATIENT
  Age: 50 Year
  Sex: Female
  Weight: 87 kg

DRUGS (5)
  1. COLECALCIFEROL CAPSULE  25.000IE / BRAND NAME NOT SPECIFIED [Concomitant]
     Dosage: 25000 UNITSTHERAPY START DATE :THERAPY END DATE :ASKU
  2. CLOPIDOGREL TABLET   75MG / BRAND NAME NOT SPECIFIED [Concomitant]
     Active Substance: CLOPIDOGREL BISULFATE
     Dosage: 75 MG (MILLIGRAM)THERAPY START DATE :THERAPY END DATE:ASKU
  3. SIMVASTATINE TABLET FO 20MG / BRAND NAME NOT SPECIFIED [Suspect]
     Active Substance: SIMVASTATIN
     Indication: PROPHYLAXIS
     Dosage: 20 MILLIGRAM DAILY; 1DD1
     Dates: start: 2016, end: 20210713
  4. METOPROLOL TABLET MGA  50MG (SUCCINAAT) / BRAND NAME NOT SPECIFIED [Concomitant]
     Active Substance: METOPROLOL SUCCINATE
     Dosage: 50 MG (MILLIGRAM)THERAPY START DATE:THERAPY END DATE:ASKU
  5. FOLIUMZUUR TABLET 5MG / BRAND NAME NOT SPECIFIED [Concomitant]
     Dosage: 5 MG (MILLIGRAM)THERAPY START DATE:THERAPY END DATE:ASKU

REACTIONS (1)
  - Pancreatitis acute [Recovering/Resolving]

NARRATIVE: CASE EVENT DATE: 20210705
